FAERS Safety Report 19078998 (Version 1)
Quarter: 2021Q1

REPORT INFORMATION
  Report Type: Spontaneous
  Country: US (occurrence: US)
  Receive Date: 20210331
  Receipt Date: 20210331
  Transmission Date: 20210420
  Serious: No
  Sender: FDA-Public Use
  Company Number: US-ASCENT PHARMACEUTICALS, INC.-2108681

PATIENT
  Age: 69 Year
  Sex: Male
  Weight: 76.36 kg

DRUGS (3)
  1. DUTASTERIDE. [Suspect]
     Active Substance: DUTASTERIDE
     Indication: BENIGN PROSTATIC HYPERPLASIA
     Route: 048
     Dates: start: 20200601
  2. ALFUZOSIN HYDROCHLORIDE. [Concomitant]
     Active Substance: ALFUZOSIN HYDROCHLORIDE
     Route: 065
  3. TADALAFIL. [Concomitant]
     Active Substance: TADALAFIL
     Route: 065

REACTIONS (3)
  - Product substitution issue [Unknown]
  - Throat irritation [Unknown]
  - Product quality issue [Unknown]

NARRATIVE: CASE EVENT DATE: 20200601
